FAERS Safety Report 7368011-4 (Version None)
Quarter: 2011Q1

REPORT INFORMATION
  Report Type: 
  Country: None (occurrence: None)
  Receive Date: 20110322
  Receipt Date: 20110319
  Transmission Date: 20110831
  Serious: Yes (Hospitalization)
  Sender: FDA-Public Use
  Company Number: IT-BAYER-2011-024721

PATIENT
  Sex: Male

DRUGS (4)
  1. SIMVASTATIN [Suspect]
     Indication: HYPERCHOLESTEROLAEMIA
     Dosage: DAILY DOSE 20 MG
     Route: 048
     Dates: start: 20110201, end: 20110314
  2. LOSARTAN POTASSIUM [Suspect]
     Dosage: DAILY DOSE 100 MG
     Route: 048
     Dates: start: 20110201, end: 20110314
  3. METFORMIN [Concomitant]
     Dosage: UNK
     Route: 048
  4. GLUCOBAY [Suspect]
     Indication: DIABETES MELLITUS
     Dosage: DAILY DOSE 150 MG
     Route: 048
     Dates: start: 20110222, end: 20110315

REACTIONS (5)
  - DIARRHOEA [None]
  - HYDRONEPHROSIS [None]
  - NEPHROLITHIASIS [None]
  - VOMITING [None]
  - ABDOMINAL PAIN [None]
